FAERS Safety Report 6426265-2 (Version None)
Quarter: 2009Q4

REPORT INFORMATION
  Report Type: 
  Country: None (occurrence: None)
  Receive Date: 20091104
  Receipt Date: 20091026
  Transmission Date: 20100525
  Serious: Yes (Hospitalization)
  Sender: FDA-Public Use
  Company Number: DE-ABBOTT-09P-062-0604954-00

PATIENT
  Sex: Female
  Weight: 87 kg

DRUGS (10)
  1. ZEMPLAR [Suspect]
     Indication: RENAL FAILURE
     Dates: start: 20090622
  2. NEO RECORMON 3000 [Concomitant]
     Indication: DRUG USE FOR UNKNOWN INDICATION
     Route: 042
     Dates: start: 20090427
  3. NEO RECORMON 2000 [Concomitant]
     Indication: DRUG USE FOR UNKNOWN INDICATION
     Route: 042
     Dates: start: 20090427
  4. FERRLECIT [Concomitant]
     Indication: DRUG USE FOR UNKNOWN INDICATION
     Route: 042
  5. APIDRA OPTISET [Concomitant]
     Indication: DRUG USE FOR UNKNOWN INDICATION
     Dosage: 100 IE/ML IF REQUIRED
     Route: 058
     Dates: start: 20081008
  6. GLURENORM [Concomitant]
     Indication: DRUG USE FOR UNKNOWN INDICATION
     Route: 048
     Dates: start: 20080730
  7. AMIODARONE HYDROCHLORIDE [Concomitant]
     Indication: DRUG USE FOR UNKNOWN INDICATION
     Route: 048
     Dates: start: 20080527
  8. ASS 100 HEXAL [Concomitant]
     Indication: DRUG USE FOR UNKNOWN INDICATION
     Route: 048
     Dates: start: 20060421
  9. OMEPRAZOL STADA [Concomitant]
     Indication: DRUG USE FOR UNKNOWN INDICATION
     Route: 048
     Dates: start: 20080604
  10. SIMVA BASICS [Concomitant]
     Indication: DRUG USE FOR UNKNOWN INDICATION
     Route: 048
     Dates: start: 20050810

REACTIONS (1)
  - HYPOTHYROIDISM [None]
